FAERS Safety Report 4281177-8 (Version None)
Quarter: 2004Q1

REPORT INFORMATION
  Report Type: 
  Country: None (occurrence: None)
  Receive Date: 20040129
  Receipt Date: 20040106
  Transmission Date: 20041129
  Serious: Yes (Other)
  Sender: FDA-Public Use
  Company Number: PHBS2004BE00494

PATIENT
  Age: 77 Year
  Sex: Female
  Weight: 60 kg

DRUGS (2)
  1. NEORAL [Suspect]
     Indication: PYODERMA GANGRENOSUM
     Dosage: 200 MG/D
     Route: 048
     Dates: start: 20031114
  2. NEORAL [Suspect]
     Dosage: 150 MG/D
     Route: 048
     Dates: end: 20031201

REACTIONS (5)
  - EYE DISORDER [None]
  - HEPATIC FUNCTION ABNORMAL [None]
  - OCULAR ICTERUS [None]
  - PHOTOPSIA [None]
  - RETINAL HAEMORRHAGE [None]
